FAERS Safety Report 9492437 (Version 2)
Quarter: 2013Q3

REPORT INFORMATION
  Report Type: Spontaneous
  Country: US (occurrence: US)
  Receive Date: 20130830
  Receipt Date: 20130904
  Transmission Date: 20140515
  Serious: Yes (Other)
  Sender: FDA-Public Use
  Company Number: CHPA2013US013508

PATIENT
  Age: 70 Year
  Sex: Female

DRUGS (4)
  1. PERDIEM OVERNIGHT RELIEF PILLS [Suspect]
     Indication: CONSTIPATION
     Dosage: 1 TO 2 DF, QD
     Route: 048
  2. VITAMIIN C [Concomitant]
     Dosage: UNK, QD
     Route: 048
  3. VITAMIN D [Concomitant]
     Dosage: UNK, QD
     Route: 048
  4. FISH OIL [Concomitant]
     Dosage: UNK, QD
     Route: 048

REACTIONS (6)
  - Drug dependence [Not Recovered/Not Resolved]
  - Bowel movement irregularity [Not Recovered/Not Resolved]
  - Drug ineffective [Unknown]
  - Therapeutic response unexpected [Unknown]
  - Incorrect drug administration duration [Unknown]
  - Underdose [Unknown]
